FAERS Safety Report 12708653 (Version 3)
Quarter: 2017Q1

REPORT INFORMATION
  Report Type: Report from Study
  Country: None (occurrence: NL)
  Receive Date: 20160901
  Receipt Date: 20170331
  Transmission Date: 20170428
  Serious: No
  Sender: FDA-Public Use
  Company Number: NL-ABBVIE-14P-114-1321894-00

PATIENT
  Age: 42 Year
  Sex: Female
  Weight: 68 kg

DRUGS (14)
  1. LUCRIN (LEUPRORELINE) [Suspect]
     Active Substance: LEUPROLIDE ACETATE
     Route: 058
  2. CODEINE PHOSPHATE [Concomitant]
     Active Substance: CODEINE PHOSPHATE
     Indication: PRODUCT USED FOR UNKNOWN INDICATION
     Dosage: 1-3 TIMES A DAY
     Route: 048
  3. LUCRIN (LEUPRORELINE) [Suspect]
     Active Substance: LEUPROLIDE ACETATE
     Route: 058
     Dates: start: 20170321
  4. LUCRIN DEPOT [Suspect]
     Active Substance: LEUPROLIDE ACETATE
     Indication: ENDOMETRIOSIS
     Route: 058
     Dates: start: 20150413, end: 20150915
  5. COLECALCIFEROL [Concomitant]
     Active Substance: CHOLECALCIFEROL
     Indication: PRODUCT USED FOR UNKNOWN INDICATION
     Dosage: DRINK/ 50.000IE/ML
     Route: 048
  6. LUCRIN (LEUPRORELINE) [Suspect]
     Active Substance: LEUPROLIDE ACETATE
     Indication: ENDOMETRIOSIS
     Route: 058
     Dates: start: 20140703, end: 201503
  7. CELEBREX [Concomitant]
     Active Substance: CELECOXIB
     Indication: RHEUMATIC DISORDER
     Route: 048
     Dates: start: 201405
  8. LUCRIN (LEUPRORELINE) [Suspect]
     Active Substance: LEUPROLIDE ACETATE
     Route: 058
  9. LUCRIN (LEUPRORELINE) [Suspect]
     Active Substance: LEUPROLIDE ACETATE
     Route: 058
  10. COLECALCIFEROL [Concomitant]
     Active Substance: CHOLECALCIFEROL
     Indication: PRODUCT USED FOR UNKNOWN INDICATION
     Route: 048
  11. LEVOCETIRIZINE [Concomitant]
     Active Substance: LEVOCETIRIZINE
     Indication: PRODUCT USED FOR UNKNOWN INDICATION
     Route: 048
  12. LUCRIN (LEUPRORELINE) [Suspect]
     Active Substance: LEUPROLIDE ACETATE
     Route: 058
  13. FLUTICASON-FUTOAAT [Concomitant]
     Indication: PRODUCT USED FOR UNKNOWN INDICATION
     Dosage: 27.5UG/DO FL 120DO
     Route: 045
  14. LUCRIN DEPOT [Suspect]
     Active Substance: LEUPROLIDE ACETATE
     Route: 058
     Dates: start: 20150916

REACTIONS (28)
  - Abdominal pain [Recovered/Resolved]
  - Skin reaction [Not Recovered/Not Resolved]
  - Gastrointestinal disorder [Not Recovered/Not Resolved]
  - Vaginal haemorrhage [Recovered/Resolved]
  - Pyrexia [Not Recovered/Not Resolved]
  - Malaise [Not Recovered/Not Resolved]
  - Off label use [Not Recovered/Not Resolved]
  - Mood swings [Not Recovered/Not Resolved]
  - Injection site pain [Recovered/Resolved]
  - Skin mass [Not Recovered/Not Resolved]
  - Drug ineffective [Not Recovered/Not Resolved]
  - Nausea [Recovered/Resolved]
  - Injection site induration [Recovered/Resolved]
  - Depressed mood [Not Recovered/Not Resolved]
  - Abdominal pain upper [Recovered/Resolved]
  - Vaginal haemorrhage [Recovered/Resolved]
  - Influenza like illness [Not Recovered/Not Resolved]
  - Malaise [Not Recovered/Not Resolved]
  - Arthralgia [Not Recovered/Not Resolved]
  - Hot flush [Not Recovered/Not Resolved]
  - Fatigue [Not Recovered/Not Resolved]
  - Arthropathy [Not Recovered/Not Resolved]
  - Dizziness [Recovered/Resolved]
  - Feeling abnormal [Not Recovered/Not Resolved]
  - Pain [Recovering/Resolving]
  - Feeling abnormal [Recovered/Resolved]
  - Injection site erythema [Not Recovered/Not Resolved]
  - Vaginal haemorrhage [Unknown]

NARRATIVE: CASE EVENT DATE: 201407
